FAERS Safety Report 15531924 (Version 8)
Quarter: 2019Q2

REPORT INFORMATION
  Report Type: Report from Study
  Country: US (occurrence: US)
  Receive Date: 20181019
  Receipt Date: 20190403
  Transmission Date: 20190711
  Serious: No
  Sender: FDA-Public Use
  Company Number: PHHY2018US124121

PATIENT
  Sex: Female

DRUGS (2)
  1. SYSTANE (HYPROMELLOSE 2910 (4000 MPA.S)) [Suspect]
     Active Substance: HYPROMELLOSE 2910 (4000 MPA.S)
     Indication: PRODUCT USED FOR UNKNOWN INDICATION
     Route: 047
  2. SYSTANE ULTRA [Suspect]
     Active Substance: POLYETHYLENE GLYCOL 400\PROPYLENE GLYCOL
     Indication: PRODUCT USED FOR UNKNOWN INDICATION
     Route: 065

REACTIONS (12)
  - Feeling abnormal [Unknown]
  - Vision blurred [Unknown]
  - Malaise [Unknown]
  - Eye irritation [Unknown]
  - Dry eye [Unknown]
  - Eye pruritus [Unknown]
  - Lacrimation increased [Unknown]
  - Foreign body sensation in eyes [Unknown]
  - Eye infection [Unknown]
  - Visual impairment [Unknown]
  - Eye disorder [Unknown]
  - Eye discharge [Unknown]
